FAERS Safety Report 24913950 (Version 1)
Quarter: 2025Q1

REPORT INFORMATION
  Report Type: Other
  Country: US (occurrence: US)
  Receive Date: 20250202
  Receipt Date: 20250202
  Transmission Date: 20250408
  Serious: Yes (Hospitalization, Other)
  Sender: DEXCEL
  Company Number: US-DEXPHARM-2025-0733

PATIENT
  Age: 9 Year
  Sex: Male

DRUGS (2)
  1. VIGABATRIN [Interacting]
     Active Substance: VIGABATRIN
  2. ACETAMINOPHEN [Interacting]
     Active Substance: ACETAMINOPHEN

REACTIONS (3)
  - Pyroglutamic acidosis [Recovered/Resolved]
  - Metabolic acidosis [Recovered/Resolved]
  - Drug interaction [Recovered/Resolved]
